FAERS Safety Report 7092204-7 (Version None)
Quarter: 2010Q4

REPORT INFORMATION
  Report Type: 
  Country: None (occurrence: None)
  Receive Date: 20101109
  Receipt Date: 20101101
  Transmission Date: 20110411
  Serious: Yes (Hospitalization)
  Sender: FDA-Public Use
  Company Number: JP-ABBOTT-10P-087-0682955-00

PATIENT
  Age: 9 Year
  Sex: Male

DRUGS (3)
  1. CEFZON FINE GRANULE [Suspect]
     Indication: PRODUCT USED FOR UNKNOWN INDICATION
     Dosage: UNKNOWN/D
     Route: 048
     Dates: start: 20100804, end: 20100805
  2. MUCODYNE [Concomitant]
     Indication: PRODUCT USED FOR UNKNOWN INDICATION
     Route: 048
     Dates: start: 20100804, end: 20100805
  3. MUCOSTA [Concomitant]
     Indication: PRODUCT USED FOR UNKNOWN INDICATION
     Route: 048

REACTIONS (3)
  - DRUG ERUPTION [None]
  - HYPERSENSITIVITY [None]
  - OCULAR HYPERAEMIA [None]
